FAERS Safety Report 14172385 (Version 1)
Quarter: 2017Q4

REPORT INFORMATION
  Report Type: Spontaneous
  Country: US (occurrence: US)
  Receive Date: 20171108
  Receipt Date: 20171108
  Transmission Date: 20180321
  Serious: Yes (Hospitalization, Disabling, Other)
  Sender: FDA-Public Use
  Company Number: None

PATIENT
  Sex: Female
  Weight: 90 kg

DRUGS (3)
  1. LEVAQUIN [Suspect]
     Active Substance: LEVOFLOXACIN
     Indication: SEPSIS
     Route: 048
     Dates: start: 20170815, end: 20170818
  2. VITAMINS [Concomitant]
     Active Substance: VITAMINS
  3. MOBIC [Concomitant]
     Active Substance: MELOXICAM

REACTIONS (12)
  - Peripheral swelling [None]
  - Neuropathy peripheral [None]
  - Photophobia [None]
  - Skin disorder [None]
  - Weight increased [None]
  - Dysstasia [None]
  - Gait inability [None]
  - Paraesthesia [None]
  - Hypoaesthesia [None]
  - Lyme disease [None]
  - Pain in extremity [None]
  - Middle insomnia [None]

NARRATIVE: CASE EVENT DATE: 20170819
